FAERS Safety Report 5875720-2 (Version None)
Quarter: 2008Q3

REPORT INFORMATION
  Report Type: 
  Country: None (occurrence: None)
  Receive Date: 20080909
  Receipt Date: 20080908
  Transmission Date: 20090109
  Serious: Yes (Other)
  Sender: FDA-Public Use
  Company Number: US-GILEAD-2008-0015878

PATIENT
  Sex: Male

DRUGS (1)
  1. VIREAD [Suspect]
     Route: 064
     Dates: end: 20080225

REACTIONS (1)
  - VENTRICULAR SEPTAL DEFECT [None]
